FAERS Safety Report 6609424-5 (Version None)
Quarter: 2010Q1

REPORT INFORMATION
  Report Type: 
  Country: None (occurrence: None)
  Receive Date: 20100302
  Receipt Date: 20100216
  Transmission Date: 20100710
  Serious: Yes (Hospitalization)
  Sender: FDA-Public Use
  Company Number: US-CELGENEUS-163-21880-09120487

PATIENT
  Sex: Female

DRUGS (1)
  1. REVLIMID [Suspect]
     Route: 048
     Dates: start: 20090416, end: 20091101

REACTIONS (4)
  - DIARRHOEA [None]
  - INTERVERTEBRAL DISC DEGENERATION [None]
  - MALAISE [None]
  - PRURITUS [None]
